FAERS Safety Report 4588408-5 (Version None)
Quarter: 2005Q1

REPORT INFORMATION
  Report Type: 
  Country: None (occurrence: None)
  Receive Date: 20050215
  Receipt Date: 20050215
  Transmission Date: 20050727
  Serious: Yes (Hospitalization)
  Sender: FDA-Public Use
  Company Number: None

PATIENT
  Sex: Female
  Weight: 122.4712 kg

DRUGS (4)
  1. NATRECOR [Suspect]
     Indication: CARDIAC FAILURE CONGESTIVE
     Dosage: 2 MCG/KG   ONCE   INTRAVENOU;  0.01MCG/KG/M   CONTINUOUS   INTRAVENOU
     Route: 042
     Dates: start: 20040910, end: 20040910
  2. NATRECOR [Suspect]
     Indication: PULMONARY OEDEMA
     Dosage: 2 MCG/KG   ONCE   INTRAVENOU;  0.01MCG/KG/M   CONTINUOUS   INTRAVENOU
     Route: 042
     Dates: start: 20040910, end: 20040910
  3. NATRECOR [Suspect]
     Indication: CARDIAC FAILURE CONGESTIVE
     Dosage: 2 MCG/KG   ONCE   INTRAVENOU;  0.01MCG/KG/M   CONTINUOUS   INTRAVENOU
     Route: 042
     Dates: start: 20040910, end: 20040911
  4. NATRECOR [Suspect]
     Indication: PULMONARY OEDEMA
     Dosage: 2 MCG/KG   ONCE   INTRAVENOU;  0.01MCG/KG/M   CONTINUOUS   INTRAVENOU
     Route: 042
     Dates: start: 20040910, end: 20040911

REACTIONS (2)
  - BLOOD PRESSURE DECREASED [None]
  - BLOOD SODIUM DECREASED [None]
